FAERS Safety Report 11524497 (Version 1)
Quarter: 2015Q3

REPORT INFORMATION
  Report Type: Spontaneous
  Country: US (occurrence: US)
  Receive Date: 20150918
  Receipt Date: 20150918
  Transmission Date: 20151125
  Serious: No
  Sender: FDA-Public Use
  Company Number: US-ROCHE-743780

PATIENT
  Age: 44 Year
  Sex: Female

DRUGS (2)
  1. PEGASYS [Suspect]
     Active Substance: PEGINTERFERON ALFA-2A
     Indication: HEPATITIS C
     Dosage: FORM:PREFILLED SYRINGE
     Route: 065
     Dates: start: 20100604, end: 20100824
  2. COPEGUS [Suspect]
     Active Substance: RIBAVIRIN
     Indication: HEPATITIS C
     Dosage: DIVIDED DOSES
     Route: 065
     Dates: start: 20100604, end: 20100824

REACTIONS (7)
  - Muscle spasms [Unknown]
  - Feeling abnormal [Unknown]
  - Drug ineffective [Unknown]
  - Chills [Unknown]
  - Dyspnoea [Unknown]
  - White blood cell count decreased [Unknown]
  - Headache [Unknown]

NARRATIVE: CASE EVENT DATE: 20100827
